FAERS Safety Report 4315602-0 (Version None)
Quarter: 2004Q1

REPORT INFORMATION
  Report Type: 
  Country: None (occurrence: None)
  Receive Date: 20040309
  Receipt Date: 20040223
  Transmission Date: 20041129
  Serious: Yes (Other)
  Sender: FDA-Public Use
  Company Number: USA040260101

PATIENT
  Age: 14 Year

DRUGS (2)
  1. STRATTERA [Suspect]
     Dosage: 80 MG/1 DAY
     Dates: start: 20031101
  2. ZOLOFT [Concomitant]

REACTIONS (1)
  - HEPATITIS [None]
